FAERS Safety Report 9224406 (Version 1)
Quarter: 2013Q1

REPORT INFORMATION
  Report Type: Spontaneous
  Country: US (occurrence: None)
  Receive Date: 20120925
  Receipt Date: 20120925
  Transmission Date: 20140127
  Serious: Yes (Hospitalization)
  Sender: FDA-Public Use
  Company Number: ADR-2012225019

PATIENT
  Age: 53 Year
  Sex: Male
  Weight: 99.79 kg

DRUGS (1)
  1. GEMFIBROZIL [Suspect]
     Indication: BLOOD CHOLESTEROL
     Route: 048
     Dates: end: 20111226

REACTIONS (2)
  - Pancreatitis acute [None]
  - Type 2 diabetes mellitus [None]
